FAERS Safety Report 18461939 (Version 3)
Quarter: 2020Q4

REPORT INFORMATION
  Report Type: Spontaneous
  Country: JP (occurrence: JP)
  Receive Date: 20201104
  Receipt Date: 20201228
  Transmission Date: 20210114
  Serious: Yes (Hospitalization, Other)
  Sender: FDA-Public Use
  Company Number: NVSJ2020JP011170

PATIENT
  Age: 82 Year
  Sex: Female

DRUGS (1)
  1. ZOMETA [Suspect]
     Active Substance: ZOLEDRONIC ACID
     Indication: PLASMA CELL MYELOMA
     Route: 042

REACTIONS (6)
  - Atypical femur fracture [Recovering/Resolving]
  - Lumbar vertebral fracture [Unknown]
  - Product use in unapproved indication [Unknown]
  - Femur fracture [Recovering/Resolving]
  - Pain in extremity [Unknown]
  - Bone hypertrophy [Unknown]
